FAERS Safety Report 4366566-5 (Version None)
Quarter: 2004Q2

REPORT INFORMATION
  Report Type: 
  Country: None (occurrence: None)
  Receive Date: 20040524
  Receipt Date: 20040512
  Transmission Date: 20050107
  Serious: Yes (Life-Threatening, Other)
  Sender: FDA-Public Use
  Company Number: 2004-02081

PATIENT
  Age: 64 Year
  Sex: Female
  Weight: 60 kg

DRUGS (2)
  1. FUROSEMIDE (WATSON LABORATORIES) (FUROSEMIDE) TABLET [Suspect]
     Indication: HYPERTENSION
     Dosage: 25 MG PER DAY
  2. OXCARBAZEPINE [Suspect]
     Indication: COMPLEX PARTIAL SEIZURES
     Dosage: 1800 MG/DAY, ORAL
     Route: 048

REACTIONS (2)
  - ENCEPHALOPATHY [None]
  - HYPONATRAEMIA [None]
